FAERS Safety Report 11192537 (Version 1)
Quarter: 2015Q2

REPORT INFORMATION
  Report Type: Spontaneous
  Country: US (occurrence: None)
  Receive Date: 20150612
  Receipt Date: 20150612
  Transmission Date: 20150821
  Serious: Yes (Hospitalization)
  Sender: FDA-Public Use
  Company Number: 2015HINLIT0483

PATIENT
  Age: 35 Year
  Sex: Female

DRUGS (1)
  1. LITHIUM. [Suspect]
     Active Substance: LITHIUM
     Indication: BIPOLAR DISORDER

REACTIONS (7)
  - Cardiomyopathy acute [None]
  - Electrocardiogram QT prolonged [None]
  - Electrocardiogram T wave inversion [None]
  - Antipsychotic drug level above therapeutic [None]
  - Metabolic acidosis [None]
  - Cardiac failure [None]
  - Respiratory failure [None]
